FAERS Safety Report 7076764-8 (Version None)
Quarter: 2010Q4

REPORT INFORMATION
  Report Type: 
  Country: None (occurrence: None)
  Receive Date: 20101029
  Receipt Date: 20101029
  Transmission Date: 20110411
  Serious: Yes (Other)
  Sender: FDA-Public Use
  Company Number: None

PATIENT
  Age: 19 Year
  Sex: Female

DRUGS (1)
  1. ZITHROMAX 250 MG PFIZER ZITHROMAX [Suspect]
     Indication: CHLAMYDIAL INFECTION
     Dosage: 1 GRAM X1 PO
     Route: 048
     Dates: start: 20101026

REACTIONS (2)
  - ABDOMINAL PAIN [None]
  - DRUG EXPOSURE DURING PREGNANCY [None]
